FAERS Safety Report 9769876 (Version 2)
Quarter: 2013Q4

REPORT INFORMATION
  Report Type: Spontaneous
  Country: US (occurrence: US)
  Receive Date: 20131218
  Receipt Date: 20131218
  Transmission Date: 20140711
  Serious: No
  Sender: FDA-Public Use
  Company Number: US-VERTEX PHARMACEUTICALS INC-AE-2011-000523

PATIENT
  Age: 51 Year
  Sex: Female

DRUGS (6)
  1. INCIVEK [Suspect]
     Indication: HEPATITIS C
     Dates: start: 20110714
  2. PEGASYS [Concomitant]
     Indication: HEPATITIS C
     Route: 058
     Dates: start: 20110714
  3. RIBAVIRIN [Concomitant]
     Indication: HEPATITIS C
     Route: 048
     Dates: start: 20110714
  4. PROZAC [Concomitant]
     Dates: start: 20110614
  5. REMERON [Concomitant]
     Dates: start: 20110401
  6. HYDROXYZINE [Concomitant]
     Indication: PRURITUS
     Dates: start: 20110401

REACTIONS (2)
  - Incorrect dose administered [Recovered/Resolved]
  - Rash erythematous [Recovered/Resolved]
